FAERS Safety Report 8879962 (Version 2)
Quarter: 2013Q2

REPORT INFORMATION
  Report Type: Spontaneous
  Country: BR (occurrence: BR)
  Receive Date: 20121101
  Receipt Date: 20130508
  Transmission Date: 20140414
  Serious: Yes (Other)
  Sender: FDA-Public Use
  Company Number: BR-AMGEN-BRASP2012026270

PATIENT
  Age: 56 Year
  Sex: Female
  Weight: 71 kg

DRUGS (13)
  1. ENBREL [Suspect]
     Indication: RHEUMATOID ARTHRITIS
     Dosage: 50 MG, WEEKLY
     Route: 058
     Dates: start: 201110
  2. OMEPRAZOL                          /00661201/ [Concomitant]
     Indication: GASTRIC DISORDER
     Dosage: 20 MG, 1X/DAY
     Dates: start: 2000
  3. PURAN T4 [Concomitant]
     Indication: THYROID DISORDER
     Dosage: 50 MG, 1X/DAY
  4. PURAN T4 [Concomitant]
     Indication: HYPOTHYROIDISM
     Dosage: UNK
  5. CLONAZEPAM [Concomitant]
     Indication: INSOMNIA
     Dosage: 3 MG, 1X/DAY
  6. FLUOXETINE [Concomitant]
     Indication: DEPRESSION
     Dosage: 20 MG, ALTERNATE DAY
     Dates: start: 1997
  7. FLUOXETINE [Concomitant]
     Indication: INSOMNIA
     Dosage: UNK
  8. LYRICA [Concomitant]
     Indication: PAIN
     Dosage: UNK
     Dates: start: 2011
  9. CYCLOBENZAPRINE [Concomitant]
     Dosage: UNK
  10. BROMAZEPAM [Concomitant]
     Indication: SLEEP DISORDER
     Dosage: UNK
  11. BROMAZEPAM [Concomitant]
     Indication: INSOMNIA
  12. ALENDRONATE SODIUM [Concomitant]
     Indication: OSTEOPOROSIS
     Dosage: 70 MG, UNK
  13. ARCALION                           /00586101/ [Concomitant]
     Indication: VITAMIN SUPPLEMENTATION
     Dosage: UNK

REACTIONS (12)
  - Cataract [Unknown]
  - Wrong technique in drug usage process [Unknown]
  - Muscle disorder [Not Recovered/Not Resolved]
  - Erythema [Unknown]
  - Pruritus [Unknown]
  - Blood test abnormal [Unknown]
  - Injection site mass [Unknown]
  - Injection site erythema [Unknown]
  - Injection site pruritus [Unknown]
  - Injection site warmth [Unknown]
  - Application site swelling [Unknown]
  - Application site pain [Unknown]
